FAERS Safety Report 6696872-0 (Version None)
Quarter: 2010Q2

REPORT INFORMATION
  Report Type: 
  Country: None (occurrence: None)
  Receive Date: 20100420
  Receipt Date: 20090827
  Transmission Date: 20101027
  Serious: Yes (Hospitalization)
  Sender: FDA-Public Use
  Company Number: SPV1-2009-01679

PATIENT
  Age: 66 Year
  Sex: Male
  Weight: 93 kg

DRUGS (6)
  1. LIALDA [Suspect]
     Indication: COLITIS
     Dosage: 1.2 G, 4X/DAY:QID, ORAL
     Route: 048
     Dates: start: 20090702, end: 20090702
  2. LIALDA [Suspect]
     Indication: COLITIS
     Dosage: 1.2 G, 4X/DAY:QID, ORAL
     Route: 048
     Dates: start: 20090716, end: 20090716
  3. PREDNISOLONE [Concomitant]
  4. NEXIUM [Concomitant]
  5. MOBIC [Concomitant]
  6. ROWASA [Concomitant]

REACTIONS (1)
  - PANCREATITIS [None]
